FAERS Safety Report 15967988 (Version 2)
Quarter: 2019Q2

REPORT INFORMATION
  Report Type: Spontaneous
  Country: HU (occurrence: HU)
  Receive Date: 20190215
  Receipt Date: 20190606
  Transmission Date: 20190711
  Serious: Yes (Hospitalization)
  Sender: FDA-Public Use
  Company Number: HU-MYLANLABS-2019M1013681

PATIENT
  Age: 1 Year
  Sex: Female

DRUGS (3)
  1. CLARITHROMYCIN. [Suspect]
     Active Substance: CLARITHROMYCIN
     Indication: ACARODERMATITIS
  2. CLARITHROMYCIN. [Suspect]
     Active Substance: CLARITHROMYCIN
     Indication: BLISTER
     Dosage: UNK
     Route: 048
     Dates: start: 20170628
  3. CLARITHROMYCIN. [Suspect]
     Active Substance: CLARITHROMYCIN
     Indication: RASH

REACTIONS (13)
  - Anaemia [Unknown]
  - Hepatomegaly [Unknown]
  - Blood chloride abnormal [Unknown]
  - Hypoalbuminaemia [Unknown]
  - Enteritis [Unknown]
  - Oedema peripheral [Unknown]
  - Gastrointestinal wall thickening [Unknown]
  - Skin disorder [Unknown]
  - Face oedema [Unknown]
  - Gallbladder hypofunction [Unknown]
  - Hyponatraemia [Unknown]
  - Blood insulin decreased [Unknown]
  - Malabsorption [Unknown]

NARRATIVE: CASE EVENT DATE: 2017
